FAERS Safety Report 7760613-6 (Version None)
Quarter: 2011Q3

REPORT INFORMATION
  Report Type: 
  Country: None (occurrence: None)
  Receive Date: 20110919
  Receipt Date: 20110912
  Transmission Date: 20111222
  Serious: Yes (Other)
  Sender: FDA-Public Use
  Company Number: JP-B.I. PHARMACEUTICALS,INC./RIDGEFIELD-2011-BP-21421NB

PATIENT
  Sex: Male
  Weight: 50 kg

DRUGS (17)
  1. PALNAC [Concomitant]
     Indication: DYSURIA
     Dosage: 0.2 MG
     Route: 048
     Dates: start: 20090101
  2. URINORM [Concomitant]
     Indication: HYPERURICAEMIA
     Dosage: 25 MG
     Route: 048
     Dates: start: 20090101
  3. ATELEC [Concomitant]
     Indication: HYPERTENSION
     Dosage: 10 MG
     Route: 048
     Dates: start: 20091204
  4. CELTOP [Concomitant]
     Indication: HYPERTENSION
     Dosage: 50 MG
     Route: 048
     Dates: start: 20110205
  5. LIPITOR [Concomitant]
     Indication: DYSLIPIDAEMIA
     Dosage: 2.5 MG
     Route: 048
     Dates: start: 20110204
  6. SOLULACT [Concomitant]
     Dosage: 500 ML
     Route: 042
     Dates: start: 20110523
  7. PRADAXA [Suspect]
     Indication: ATRIAL FIBRILLATION
     Dosage: 220 MG
     Route: 048
     Dates: start: 20110509, end: 20110523
  8. TOWARAT-CR [Concomitant]
     Indication: ANGINA PECTORIS
     Dosage: 40 MG
     Route: 048
     Dates: start: 19890101
  9. LANSOPRAZOLE [Concomitant]
     Indication: HAEMORRHAGE PROPHYLAXIS
     Dosage: 15 MG
     Route: 048
     Dates: start: 20110509
  10. KAMOSTAAL [Concomitant]
     Indication: PROSTATE CANCER
     Dosage: 600 MG
     Route: 048
     Dates: start: 20050101
  11. DIOVAN [Concomitant]
     Indication: HYPERTENSION
     Dosage: 160 MG
     Route: 048
     Dates: start: 20090101
  12. HARURINE [Concomitant]
     Indication: PROSTATE CANCER
     Route: 048
     Dates: start: 20050101
  13. DAI-KENCHU-TO [Concomitant]
     Indication: PROSTATE CANCER
     Dosage: 2.5 G
     Route: 048
     Dates: start: 20050101
  14. ASPIRIN [Concomitant]
     Indication: TRANSIENT ISCHAEMIC ATTACK
     Dosage: 100 MG
     Route: 048
     Dates: start: 20090101
  15. ISOSORBIDE DINITRATE [Concomitant]
     Indication: ANGINA PECTORIS
     Dosage: 40 MG
     Route: 048
     Dates: start: 19890101
  16. DIGOHAN [Concomitant]
     Indication: ATRIAL FIBRILLATION
     Dosage: 0.125 MG
     Route: 048
     Dates: start: 20090101
  17. TRYTHMEN [Concomitant]
     Indication: HYPERTENSION
     Dosage: 0.5 MG
     Route: 048
     Dates: start: 20110204

REACTIONS (3)
  - HYPOCOAGULABLE STATE [None]
  - RASH [None]
  - HAEMORRHAGE SUBCUTANEOUS [None]
